FAERS Safety Report 22937220 (Version 2)
Quarter: 2024Q3

REPORT INFORMATION
  Report Type: Spontaneous
  Country: CA (occurrence: None)
  Receive Date: 20230913
  Receipt Date: 20240716
  Transmission Date: 20241017
  Serious: Yes (Hospitalization)
  Sender: ASTRAZENECA
  Company Number: 2023A206641

PATIENT
  Age: 47 Year
  Sex: Female

DRUGS (13)
  1. BUDESONIDE\FORMOTEROL FUMARATE [Suspect]
     Active Substance: BUDESONIDE\FORMOTEROL FUMARATE
     Indication: Asthma
     Dosage: UNKNOWN UNKNOWN
  2. MONTELUKAST [Suspect]
     Active Substance: MONTELUKAST SODIUM
     Indication: Asthma
  3. MONTELUKAST [Suspect]
     Active Substance: MONTELUKAST SODIUM
     Indication: Asthma
     Route: 048
  4. CALCIUM [Suspect]
     Active Substance: CALCIUM
     Indication: Product used for unknown indication
  5. AZITHROMYCIN [Suspect]
     Active Substance: AZITHROMYCIN
     Indication: Product used for unknown indication
  6. PREDNISONE [Suspect]
     Active Substance: PREDNISONE
     Indication: Product used for unknown indication
  7. TIOTROPIUM BROMIDE MONOHYDRATE [Suspect]
     Active Substance: TIOTROPIUM BROMIDE MONOHYDRATE
     Indication: Asthma
  8. BREO ELLIPTA [Concomitant]
     Active Substance: FLUTICASONE FUROATE\VILANTEROL TRIFENATATE
     Route: 055
  9. FERROUS SULFATE ANHYDROUS [Concomitant]
     Active Substance: FERROUS SULFATE ANHYDROUS
  10. MEDROL [Concomitant]
     Active Substance: METHYLPREDNISOLONE
  11. NASACORT [Concomitant]
     Active Substance: TRIAMCINOLONE ACETONIDE
  12. VENTOLIN [Concomitant]
     Active Substance: ALBUTEROL SULFATE
  13. VITAMIN D [Concomitant]
     Active Substance: VITAMIN D NOS

REACTIONS (15)
  - Bronchial wall thickening [Recovering/Resolving]
  - Cough [Recovering/Resolving]
  - Hiatus hernia [Recovering/Resolving]
  - Hilar lymphadenopathy [Recovering/Resolving]
  - Influenza [Recovering/Resolving]
  - Lung infiltration [Recovering/Resolving]
  - Middle insomnia [Recovering/Resolving]
  - Nasal oedema [Recovering/Resolving]
  - Nocturnal dyspnoea [Recovering/Resolving]
  - Respiratory disorder [Recovering/Resolving]
  - Rhonchi [Recovering/Resolving]
  - Sinus polyp degeneration [Recovering/Resolving]
  - Snoring [Recovering/Resolving]
  - Terminal insomnia [Recovering/Resolving]
  - Therapeutic product effect incomplete [Recovering/Resolving]
